FAERS Safety Report 8607680 (Version 2)
Quarter: 2012Q4

REPORT INFORMATION
  Report Type: 
  Country: US (occurrence: US)
  Receive Date: 20120611
  Receipt Date: 20120830
  Transmission Date: 20130627
  Serious: Yes (Hospitalization, Other)
  Sender: FDA-Public Use
  Company Number: US-BAYER-2012-055880

PATIENT
  Age: 17 Year
  Sex: Female
  Weight: 80.27 kg

DRUGS (8)
  1. YAZ [Suspect]
     Indication: CONTRACEPTION
     Dosage: UNK
     Dates: start: 200810, end: 20100521
  2. IBUPROFEN [Concomitant]
     Indication: HEADACHE
     Dosage: 600 mg, UNK
     Dates: start: 20100510
  3. MAXALT [Concomitant]
     Dosage: 10 mg, UNK
     Dates: start: 20100521
  4. ACETAZOLAMIDE [Concomitant]
     Dosage: 250 mg, BID
     Route: 048
  5. ATIVAN [Concomitant]
  6. TYLENOL [Concomitant]
  7. ANTIEMETICS AND ANTINAUSEANTS [Concomitant]
  8. SALINE [Concomitant]

REACTIONS (5)
  - Intracranial venous sinus thrombosis [Recovered/Resolved]
  - Thrombotic stroke [None]
  - Deep vein thrombosis [None]
  - Pain [None]
  - Emotional distress [None]
